FAERS Safety Report 8964980 (Version 6)
Quarter: 2014Q1

REPORT INFORMATION
  Report Type: Report from Study
  Country: KR (occurrence: KR)
  Receive Date: 20121213
  Receipt Date: 20140226
  Transmission Date: 20141002
  Serious: Yes (Hospitalization)
  Sender: FDA-Public Use
  Company Number: KR-BRISTOL-MYERS SQUIBB COMPANY-17172818

PATIENT
  Age: 67 Year
  Sex: Male
  Weight: 61.8 kg

DRUGS (14)
  1. IPILIMUMAB [Suspect]
     Indication: GASTRIC CANCER
     Dosage: 4TH INDUCTION TREATMENT ON 22NOV12
     Route: 042
     Dates: start: 20120920
  2. HARTMANN SOLUTION [Concomitant]
  3. HYDROCORTISONE [Concomitant]
  4. CEFTRIAXONE [Concomitant]
  5. PROPACETAMOL [Concomitant]
  6. SODIUM CHLORIDE [Concomitant]
  7. CALCIUM GLUCONATE [Concomitant]
  8. MAGNESIUM [Concomitant]
  9. BACLOFEN [Concomitant]
  10. TETRACOSACTIDE [Concomitant]
  11. POTASSIUM PHOSPHATE [Concomitant]
  12. AMARYL [Concomitant]
     Dosage: 1DF: 2TABS
     Dates: start: 20120512
  13. LOSARTAN [Concomitant]
     Dates: start: 20120512
  14. ASPIRIN [Concomitant]
     Dates: start: 20120514

REACTIONS (1)
  - Hypopituitarism [Recovered/Resolved with Sequelae]
